FAERS Safety Report 10053244 (Version 1)
Quarter: 2014Q2

REPORT INFORMATION
  Report Type: Spontaneous
  Country: CH (occurrence: CH)
  Receive Date: 20140402
  Receipt Date: 20140402
  Transmission Date: 20141212
  Serious: Yes (Hospitalization)
  Sender: FDA-Public Use
  Company Number: CH-GLAXOSMITHKLINE-B0982124A

PATIENT
  Sex: Female

DRUGS (4)
  1. VALTREX [Suspect]
     Indication: PRODUCT USED FOR UNKNOWN INDICATION
     Dosage: 250MG TWICE PER DAY
     Route: 048
  2. ASPIRIN CARDIO [Concomitant]
     Dosage: 100MG PER DAY
     Route: 048
     Dates: start: 201309, end: 201401
  3. DALMADORM [Concomitant]
     Dosage: 15MG PER DAY
     Route: 048
  4. ZOVIRAX [Concomitant]
     Dosage: 1UNIT PER DAY
     Route: 047

REACTIONS (2)
  - Dysaesthesia [Not Recovered/Not Resolved]
  - Tremor [Not Recovered/Not Resolved]
